FAERS Safety Report 13123652 (Version 1)
Quarter: 2017Q1

REPORT INFORMATION
  Report Type: Spontaneous
  Country: FR (occurrence: FR)
  Receive Date: 20170117
  Receipt Date: 20170117
  Transmission Date: 20170428
  Serious: Yes (Hospitalization)
  Sender: FDA-Public Use
  Company Number: PHHY2017FR003838

PATIENT
  Age: 88 Year
  Sex: Female

DRUGS (2)
  1. FLUINDIONE [Concomitant]
     Active Substance: FLUINDIONE
     Indication: ATRIAL FIBRILLATION
     Route: 065
  2. PREDNISOLONE. [Suspect]
     Active Substance: PREDNISOLONE
     Indication: TEMPORAL ARTERITIS
     Dosage: 10 MG, QD
     Route: 065

REACTIONS (3)
  - Rash erythematous [Recovered/Resolved with Sequelae]
  - Haematoma [Recovered/Resolved]
  - Mycobacterium chelonae infection [Recovered/Resolved with Sequelae]
